FAERS Safety Report 4912776-5 (Version None)
Quarter: 2006Q1

REPORT INFORMATION
  Report Type: 
  Country: None (occurrence: None)
  Receive Date: 20060213
  Receipt Date: 20060202
  Transmission Date: 20060701
  Serious: Yes (Death, Hospitalization)
  Sender: FDA-Public Use
  Company Number: 2005139036

PATIENT
  Age: 42 Year
  Sex: Male

DRUGS (2)
  1. VFEND [Suspect]
     Indication: PROPHYLAXIS
  2. CORTICOSTEROIDS (CORTICOSTEROIDS) [Suspect]
     Indication: GRAFT VERSUS HOST DISEASE

REACTIONS (17)
  - BRONCHOPULMONARY ASPERGILLOSIS [None]
  - CEREBRAL ISCHAEMIA [None]
  - CEREBROVASCULAR ACCIDENT [None]
  - CEREBROVASCULAR DISORDER [None]
  - COMA [None]
  - CYTOMEGALOVIRUS GASTRITIS [None]
  - FUNGAL INFECTION [None]
  - GASTRIC ULCER [None]
  - GASTRITIS EROSIVE [None]
  - GASTROINTESTINAL HAEMORRHAGE [None]
  - GASTROINTESTINAL NECROSIS [None]
  - NEUROLOGICAL SYMPTOM [None]
  - PULMONARY NECROSIS [None]
  - RECTAL HAEMORRHAGE [None]
  - RENAL ISCHAEMIA [None]
  - RENAL NECROSIS [None]
  - THROMBOSIS [None]
